FAERS Safety Report 9779308 (Version 2)
Quarter: 2014Q1

REPORT INFORMATION
  Report Type: Other
  Country: DK (occurrence: CH)
  Receive Date: 20131223
  Receipt Date: 20140102
  Transmission Date: 20141002
  Serious: Yes (Death)
  Sender: FDA-Public Use
  Company Number: CH-FRI-1000052398

PATIENT
  Age: 55 Year
  Sex: Male

DRUGS (6)
  1. ESCITALOPRAM [Suspect]
     Dosage: OVERDOSE 30 MG DAILY
  2. METHADONE [Suspect]
  3. ATAZANAVIR [Suspect]
  4. LEVOMEPROMAZINE [Suspect]
     Dosage: 50 MG
  5. ZIDOVUDINE [Suspect]
     Dosage: 600 MG
  6. LAMIVUDINE [Suspect]
     Dosage: 300 MG

REACTIONS (3)
  - Sudden death [Fatal]
  - Overdose [Unknown]
  - Drug abuse [Unknown]
